FAERS Safety Report 4707021-X (Version None)
Quarter: 2005Q3

REPORT INFORMATION
  Report Type: 
  Country: None (occurrence: None)
  Receive Date: 20050701
  Receipt Date: 20050624
  Transmission Date: 20060218
  Serious: Yes (Life-Threatening, Hospitalization)
  Sender: FDA-Public Use
  Company Number: SUSI-2005-00510

PATIENT
  Age: 22 Year
  Sex: Female

DRUGS (1)
  1. ADDERALL XR 25 [Suspect]

REACTIONS (3)
  - CARDIAC ARREST [None]
  - LOSS OF CONSCIOUSNESS [None]
  - SYNCOPE [None]
